FAERS Safety Report 14244995 (Version 5)
Quarter: 2018Q2

REPORT INFORMATION
  Report Type: Report from Study
  Country: None (occurrence: NL)
  Receive Date: 20171201
  Receipt Date: 20180625
  Transmission Date: 20180711
  Serious: Yes (Hospitalization, Other)
  Sender: FDA-Public Use
  Company Number: NL-ABBVIE-16K-114-1711040-00

PATIENT
  Age: 74 Year
  Sex: Female

DRUGS (12)
  1. DUODOPA [Suspect]
     Active Substance: CARBIDOPA\LEVODOPA
     Dosage: CONTINUOUS DOSE IS 4.2 ML
     Route: 050
  2. PYRIDOXINE [Suspect]
     Active Substance: PYRIDOXINE
     Indication: VITAMIN B6 DEFICIENCY
     Route: 065
  3. TEMAZEPAM. [Suspect]
     Active Substance: TEMAZEPAM
     Indication: INSOMNIA
     Route: 065
  4. DUODOPA [Suspect]
     Active Substance: CARBIDOPA\LEVODOPA
     Dosage: MORNING DOSE: 8.5 CONTINUOUS DOSE: 4.5 EXTRA DOSE: 4.6 NIGHT?DOSE: 3.5 EXTRA NIGHT DOSE 3
     Route: 050
  5. DUODOPA [Suspect]
     Active Substance: CARBIDOPA\LEVODOPA
     Indication: PARKINSON^S DISEASE
     Dosage: MD: 8.0, CD: 2.8, ED: 2.0, CND: 1.6
     Route: 050
     Dates: start: 20160815, end: 201608
  6. DUODOPA [Suspect]
     Active Substance: CARBIDOPA\LEVODOPA
     Dosage: MORNING DOSE: 8.5 CONTINUOUS DOSE: 5.0 EXTRA DOSE: 4.6 NIGHT DOSE: 3.5 EXTRA NIGHT DOSE 3
     Route: 050
  7. DUODOPA [Suspect]
     Active Substance: CARBIDOPA\LEVODOPA
     Dosage: MORNING DOSE: 8.5 CONTINUOUS DOSE: 4.7 EXTRA DOSE: 4.6 NIGHT DOSE: 3.5 EXTRA NIGHT DOSE 3
     Route: 050
  8. DUODOPA [Suspect]
     Active Substance: CARBIDOPA\LEVODOPA
     Dosage: MORNING DOSE: 8.5 CONTINUOUS DOSE: 5.0 EXTRA DOSE: 1.0 NIGHT DOSE: 3.6 EXTRA NIGHT DOSE 3
     Route: 050
  9. TEMAZEPAM. [Suspect]
     Active Substance: TEMAZEPAM
     Indication: MUSCLE RIGIDITY
  10. DUODOPA [Suspect]
     Active Substance: CARBIDOPA\LEVODOPA
     Dosage: CD: 3.1, ED: 3.0, ND: 1.6
     Route: 050
     Dates: start: 201608
  11. DUODOPA [Suspect]
     Active Substance: CARBIDOPA\LEVODOPA
     Dosage: ADJUSTED THE PUMP DOSES MD 8.5, ED DAY 3, CD DAY 3.4, CD NIGHT 2.1, ED NIGHT 0
     Route: 050
  12. TEMAZEPAM. [Suspect]
     Active Substance: TEMAZEPAM
     Indication: ANXIETY

REACTIONS (19)
  - Ear pain [Not Recovered/Not Resolved]
  - Stoma site discharge [Recovered/Resolved]
  - Gait inability [Not Recovered/Not Resolved]
  - Reduced facial expression [Not Recovered/Not Resolved]
  - Dyspnoea [Not Recovered/Not Resolved]
  - Hypersomnia [Not Recovered/Not Resolved]
  - Incorrect dose administered [Unknown]
  - Paraesthesia [Not Recovered/Not Resolved]
  - Seizure [Not Recovered/Not Resolved]
  - Parkinson^s disease [Not Recovered/Not Resolved]
  - Hallucination [Unknown]
  - Vitamin B6 increased [Not Recovered/Not Resolved]
  - On and off phenomenon [Not Recovered/Not Resolved]
  - Polyneuropathy [Not Recovered/Not Resolved]
  - Aphasia [Not Recovered/Not Resolved]
  - Abnormal dreams [Not Recovered/Not Resolved]
  - Headache [Not Recovered/Not Resolved]
  - Hyperkinesia [Not Recovered/Not Resolved]
  - Vitamin B6 deficiency [Recovered/Resolved]

NARRATIVE: CASE EVENT DATE: 201608
